FAERS Safety Report 6911103-1 (Version None)
Quarter: 2010Q3

REPORT INFORMATION
  Report Type: 
  Country: None (occurrence: None)
  Receive Date: 20100806
  Receipt Date: 20100727
  Transmission Date: 20110219
  Serious: Yes (Disabling, Other)
  Sender: FDA-Public Use
  Company Number: JP-PFIZER INC-2010090971

PATIENT
  Age: 69 Year
  Sex: Male
  Weight: 60 kg

DRUGS (6)
  1. CELECOX [Suspect]
     Dosage: 100 MG, 2X/DAY
     Route: 048
     Dates: start: 20100511
  2. ASPIRIN [Concomitant]
     Dosage: UNK
     Route: 048
  3. AMLODIPINE BESYLATE [Concomitant]
     Dosage: UNK
  4. NORVASC [Concomitant]
     Dosage: UNK
     Dates: start: 20081219
  5. MUCOSOLVAN [Concomitant]
     Dosage: UNK
     Dates: start: 20090131
  6. RABEPRAZOLE SODIUM [Concomitant]
     Dosage: UNK
     Dates: start: 20100511

REACTIONS (1)
  - ATRIOVENTRICULAR BLOCK COMPLETE [None]
